FAERS Safety Report 8312001-1 (Version None)
Quarter: 2012Q2

REPORT INFORMATION
  Report Type: 
  Country: None (occurrence: None)
  Receive Date: 20120425
  Receipt Date: 20120420
  Transmission Date: 20120825
  Serious: No
  Sender: FDA-Public Use
  Company Number: US-PFIZER INC-2012032413

PATIENT
  Sex: Female
  Weight: 78 kg

DRUGS (3)
  1. LIPITOR [Suspect]
     Dosage: 20 MG, 1X/DAY
     Route: 048
  2. ACCUPRIL [Suspect]
     Indication: HYPERTENSION
     Dosage: 40 MG, 1X/DAY
     Route: 048
  3. OXYCODONE [Concomitant]
     Indication: PAIN
     Dosage: UNK

REACTIONS (1)
  - CARPAL TUNNEL SYNDROME [None]
